FAERS Safety Report 5363499-2 (Version None)
Quarter: 2007Q2

REPORT INFORMATION
  Report Type: 
  Country: None (occurrence: None)
  Receive Date: 20070620
  Receipt Date: 20070612
  Transmission Date: 20071010
  Serious: Yes (Hospitalization, Disabling)
  Sender: FDA-Public Use
  Company Number: AU-AMGEN-US188608

PATIENT
  Sex: Female

DRUGS (10)
  1. DARBEPOETIN ALFA [Suspect]
     Indication: ANAEMIA OF MALIGNANT DISEASE
     Route: 058
     Dates: start: 20060622
  2. NEULASTA [Suspect]
     Indication: CHEMOTHERAPY
     Route: 058
     Dates: start: 20060609, end: 20060721
  3. IRON [Suspect]
  4. ADRIAMYCIN PFS [Concomitant]
     Route: 042
     Dates: start: 20060721
  5. CYCLOPHOSPHAMIDE [Concomitant]
     Route: 042
     Dates: start: 20060721
  6. CLEXANE [Concomitant]
     Route: 058
     Dates: start: 20060726, end: 20060726
  7. ANZEMET [Concomitant]
  8. CIPROFLOXACIN HYDROCHLORIDE [Concomitant]
  9. MAXOLON [Concomitant]
     Route: 048
     Dates: start: 20060726, end: 20060726
  10. LORAZEPAM [Concomitant]
     Route: 060
     Dates: start: 20060726, end: 20060726

REACTIONS (1)
  - PALMAR-PLANTAR ERYTHRODYSAESTHESIA SYNDROME [None]
